FAERS Safety Report 5356766-X (Version None)
Quarter: 2007Q2

REPORT INFORMATION
  Report Type: 
  Country: None (occurrence: None)
  Receive Date: 20070614
  Receipt Date: 20060426
  Transmission Date: 20071010
  Serious: No
  Sender: FDA-Public Use
  Company Number: US-ASTRAZENECA-2006UW07509

PATIENT
  Age: 67 Year
  Sex: Female
  Weight: 72.6 kg

DRUGS (2)
  1. ATACAND [Suspect]
     Indication: BLOOD PRESSURE INCREASED
     Route: 048
  2. TOPROL-XL [Concomitant]
     Route: 048

REACTIONS (5)
  - ABDOMINAL PAIN [None]
  - CHEST DISCOMFORT [None]
  - DIZZINESS [None]
  - DYSPNOEA [None]
  - MIGRAINE [None]
